FAERS Safety Report 4413629-1 (Version None)
Quarter: 2004Q2

REPORT INFORMATION
  Report Type: 
  Country: None (occurrence: None)
  Receive Date: 20040630
  Receipt Date: 20040301
  Transmission Date: 20050107
  Serious: No
  Sender: FDA-Public Use
  Company Number: 04P-163-0251745-00

PATIENT
  Sex: Female
  Weight: 70.3075 kg

DRUGS (12)
  1. HUMIRA [Suspect]
     Indication: RHEUMATOID ARTHRITIS
     Dosage: 40 MG, 1 IN 2 WK, SUBCUTANEOUS
     Route: 058
     Dates: start: 20040301
  2. PREDNISONE TAB [Concomitant]
  3. BUMETANIDE [Concomitant]
  4. SIMVASTATIN [Concomitant]
  5. ACETYLSALICYLIC ACID [Concomitant]
  6. CLOPIDOGREL BISULFATE [Concomitant]
  7. LOSARTAN POTASSIUM [Concomitant]
  8. OMEPRAZOLE [Concomitant]
  9. ALENDRONATE SODIUM [Concomitant]
  10. DORZOLAMIDE HYDROCHLORIDE [Concomitant]
  11. MULTI-VITAMINS [Concomitant]
  12. CALCIUM WITH VITAMIN D [Concomitant]

REACTIONS (1)
  - INJECTION SITE BURNING [None]
